FAERS Safety Report 20189934 (Version 1)
Quarter: 2021Q4

REPORT INFORMATION
  Report Type: Spontaneous
  Country: US (occurrence: US)
  Receive Date: 20211215
  Receipt Date: 20211215
  Transmission Date: 20220303
  Serious: Yes (Other)
  Sender: FDA-Public Use
  Company Number: US-PFIZER INC-2020025037

PATIENT
  Age: 83 Year
  Sex: Male

DRUGS (1)
  1. VYNDAMAX [Suspect]
     Active Substance: TAFAMIDIS
     Indication: Amyloidosis
     Dosage: 61 MG

REACTIONS (11)
  - Cardiac amyloidosis [Unknown]
  - Atrial fibrillation [Unknown]
  - Mitral valve incompetence [Unknown]
  - Tricuspid valve incompetence [Unknown]
  - Chronic kidney disease [Unknown]
  - Amyloidosis senile [Unknown]
  - Chronic left ventricular failure [Unknown]
  - Aortic valve stenosis [Unknown]
  - Hypertension [Unknown]
  - Mitral valve repair [Unknown]
  - Off label use [Unknown]
